FAERS Safety Report 17018231 (Version 3)
Quarter: 2025Q3

REPORT INFORMATION
  Report Type: Report from Study
  Country: EU (occurrence: EU)
  Receive Date: 20191111
  Receipt Date: 20250718
  Transmission Date: 20251021
  Serious: Yes (Death, Hospitalization, Disabling, Other)
  Sender: REGENERON
  Company Number: EU-SA-2019SA226000

PATIENT
  Age: 83 Year
  Sex: Male

DRUGS (8)
  1. CEMIPLIMAB [Suspect]
     Active Substance: CEMIPLIMAB
     Indication: Squamous cell carcinoma of skin
     Dosage: 3 MG/KG, QOW
     Route: 042
     Dates: start: 20190425
  2. PREDNISONE [Suspect]
     Active Substance: PREDNISONE
     Indication: Pemphigoid
     Dosage: 70 MG, QD
     Route: 048
     Dates: start: 20190813
  3. PREDNISONE [Suspect]
     Active Substance: PREDNISONE
     Dosage: 10 MG, QW
     Route: 048
     Dates: start: 20190813, end: 20190912
  4. PREDNISONE [Suspect]
     Active Substance: PREDNISONE
     Route: 048
     Dates: start: 20190912
  5. ENALAPRIL\HYDROCHLOROTHIAZIDE [Concomitant]
     Active Substance: ENALAPRIL\HYDROCHLOROTHIAZIDE
     Indication: Hypertension
     Dosage: 20/12.5 MG
     Dates: start: 2018
  6. LERCANIDIPINE HYDROCHLORIDE [Concomitant]
     Active Substance: LERCANIDIPINE HYDROCHLORIDE
     Indication: Hypertension
     Dosage: 20 MG, QD
     Dates: start: 2018
  7. ALGELDRATE\SODIUM ALGINATE [Concomitant]
     Active Substance: ALGELDRATE\SODIUM ALGINATE
     Indication: Reflux gastritis
     Dosage: 2 DF, TID
     Route: 048
     Dates: start: 2017
  8. ALLOPURINOL [Concomitant]
     Active Substance: ALLOPURINOL
     Indication: Gout
     Dosage: 1 DF/QD
     Dates: start: 20190715

REACTIONS (8)
  - Pneumocystis jirovecii pneumonia [Fatal]
  - Pneumocystis jirovecii pneumonia [Fatal]
  - Dyspnoea [Fatal]
  - Urticaria [Unknown]
  - Skin plaque [Unknown]
  - Pemphigoid [Recovered/Resolved]
  - Pruritus [Recovered/Resolved]
  - Urticaria [Unknown]

NARRATIVE: CASE EVENT DATE: 20190626
